FAERS Safety Report 6454637-9 (Version None)
Quarter: 2009Q4

REPORT INFORMATION
  Report Type: 
  Country: None (occurrence: None)
  Receive Date: 20091118
  Receipt Date: 20091112
  Transmission Date: 20100525
  Serious: Yes (Other)
  Sender: FDA-Public Use
  Company Number: 1-20604210

PATIENT
  Age: 63 Year

DRUGS (2)
  1. LAMOTRIGINE [Suspect]
     Indication: PARTIAL SEIZURES
     Dosage: 50 MG TWICE DAILY
  2. ATORVASTATIN [Concomitant]

REACTIONS (2)
  - MENTAL DISORDER [None]
  - WITHDRAWAL SYNDROME [None]
